FAERS Safety Report 5329879-6 (Version None)
Quarter: 2007Q2

REPORT INFORMATION
  Report Type: 
  Country: None (occurrence: None)
  Receive Date: 20070521
  Receipt Date: 20070509
  Transmission Date: 20071010
  Serious: Yes (Other)
  Sender: FDA-Public Use
  Company Number: GB-AVENTIS-200322414GDDC

PATIENT
  Sex: Male
  Weight: 4.6 kg

DRUGS (6)
  1. FRUSEMIDE [Suspect]
  2. DIAZOXIDE [Suspect]
     Indication: HYPERINSULINAEMIA
  3. DIAZOXIDE [Suspect]
  4. DIAZOXIDE [Suspect]
  5. SPIRONOLACTONE [Suspect]
  6. ACETYLSALICYLIC ACID SRT [Suspect]

REACTIONS (2)
  - DRUG INTERACTION [None]
  - HYPERGLYCAEMIA [None]
